FAERS Safety Report 21397765 (Version 3)
Quarter: 2022Q4

REPORT INFORMATION
  Report Type: Spontaneous
  Country: PL (occurrence: PL)
  Receive Date: 20220930
  Receipt Date: 20221103
  Transmission Date: 20230113
  Serious: Yes (Other)
  Sender: FDA-Public Use
  Company Number: PL-AMGEN-POLSP2022162969

PATIENT
  Age: 4 Year
  Sex: Female
  Weight: 19 kg

DRUGS (2)
  1. NPLATE [Suspect]
     Active Substance: ROMIPLOSTIM
     Indication: Immune thrombocytopenia
     Dosage: 6 MICROGRAM/KILOGRAM
     Route: 065
     Dates: start: 20220912
  2. NPLATE [Suspect]
     Active Substance: ROMIPLOSTIM
     Dosage: 110 MICROGRAM
     Route: 065
     Dates: start: 20220912

REACTIONS (2)
  - Immune thrombocytopenia [Unknown]
  - COVID-19 [Unknown]

NARRATIVE: CASE EVENT DATE: 20220918
